FAERS Safety Report 4351329-7 (Version None)
Quarter: 2004Q2

REPORT INFORMATION
  Report Type: 
  Country: None (occurrence: None)
  Receive Date: 20040428
  Receipt Date: 20040413
  Transmission Date: 20050107
  Serious: Yes (Other)
  Sender: FDA-Public Use
  Company Number: USA040464840

PATIENT
  Age: 57 Year
  Sex: Female

DRUGS (1)
  1. PROZAC [Suspect]
     Indication: ANXIETY
     Dosage: 20 MG/1 DAY
     Dates: start: 19940101

REACTIONS (3)
  - LUPUS-LIKE SYNDROME [None]
  - NIGHTMARE [None]
  - SLEEP DISORDER [None]
